FAERS Safety Report 6764303-8 (Version None)
Quarter: 2010Q2

REPORT INFORMATION
  Report Type: 
  Country: None (occurrence: None)
  Receive Date: 20100610
  Receipt Date: 20100603
  Transmission Date: 20101027
  Serious: Yes (Hospitalization)
  Sender: FDA-Public Use
  Company Number: CHPA2010US09667

PATIENT
  Age: 6 Year
  Sex: Female
  Weight: 30.4 kg

DRUGS (6)
  1. TRIAMINIC SRT [Suspect]
     Dosage: UNK, UNK
     Route: 048
  2. CHILDREN'S MOTRIN [Suspect]
     Indication: NASOPHARYNGITIS
     Dosage: 4 ML, BID
     Route: 048
     Dates: start: 20100430, end: 20100101
  3. BENADRYL [Suspect]
     Indication: NASOPHARYNGITIS
     Dosage: 4 ML, BID
     Route: 048
     Dates: start: 20100429, end: 20100101
  4. ADDERALL 10 [Concomitant]
     Dosage: UNK, UNK
  5. SINGULAIR [Concomitant]
     Dosage: UNK, UNK
  6. PROPAVAN [Concomitant]
     Dosage: UNK, UNK

REACTIONS (2)
  - DYSPNOEA [None]
  - HEART RATE INCREASED [None]
